FAERS Safety Report 24643772 (Version 6)
Quarter: 2025Q2

REPORT INFORMATION
  Report Type: Spontaneous
  Country: US (occurrence: US)
  Receive Date: 20241120
  Receipt Date: 20250508
  Transmission Date: 20250716
  Serious: Yes (Hospitalization)
  Sender: PFIZER
  Company Number: US-PFIZER INC-202400306139

PATIENT
  Age: 85 Year
  Sex: Female

DRUGS (4)
  1. CIBINQO [Suspect]
     Active Substance: ABROCITINIB
     Dosage: 100 MG, 1X/DAY
     Route: 048
  2. CIBINQO [Suspect]
     Active Substance: ABROCITINIB
     Dosage: 100 MG BY MOUTH DAILY
     Route: 048
  3. CIBINQO [Suspect]
     Active Substance: ABROCITINIB
     Route: 048
  4. CIBINQO [Suspect]
     Active Substance: ABROCITINIB
     Dosage: 100MG TABLET ONCE DAILY
     Route: 048

REACTIONS (8)
  - Blood potassium decreased [Unknown]
  - Arthralgia [Unknown]
  - Fall [Unknown]
  - Balance disorder [Unknown]
  - Pruritus [Not Recovered/Not Resolved]
  - Poor quality sleep [Unknown]
  - Dry mouth [Unknown]
  - Pain [Unknown]

NARRATIVE: CASE EVENT DATE: 20250101
